FAERS Safety Report 19439440 (Version 1)
Quarter: 2021Q2

REPORT INFORMATION
  Report Type: Spontaneous
  Country: JP (occurrence: JP)
  Receive Date: 20210619
  Receipt Date: 20210619
  Transmission Date: 20210717
  Serious: Yes (Other)
  Sender: FDA-Public Use
  Company Number: JP-ACCORD-228333

PATIENT
  Age: 17 Month
  Sex: Male

DRUGS (5)
  1. GEMCITABINE/GEMCITABINE HYDROCHLORIDE [Suspect]
     Active Substance: GEMCITABINE\GEMCITABINE HYDROCHLORIDE
     Indication: METASTATIC NEOPLASM
     Dosage: 900MG/M2 ON DAY 1 AND DAY 8 (4 COURSES)
  2. METHOTREXATE. [Concomitant]
     Active Substance: METHOTREXATE
     Indication: ATYPICAL TERATOID/RHABDOID TUMOUR OF CNS
     Dosage: 2 MG/DOSE (11 COURSES)
     Route: 037
  3. DOCETAXEL. [Suspect]
     Active Substance: DOCETAXEL
     Indication: METASTATIC NEOPLASM
     Dosage: ON DAY 8 (4 COURSES)
  4. DOCETAXEL. [Suspect]
     Active Substance: DOCETAXEL
     Indication: ATYPICAL TERATOID/RHABDOID TUMOUR OF CNS
     Dosage: ON DAY 8 (4 COURSES)
  5. METHOTREXATE. [Concomitant]
     Active Substance: METHOTREXATE
     Indication: METASTATIC NEOPLASM
     Dosage: 2 MG/DOSE (11 COURSES)
     Route: 037

REACTIONS (3)
  - Face oedema [Unknown]
  - Haematotoxicity [Unknown]
  - Non-pitting oedema [Unknown]
